FAERS Safety Report 14855832 (Version 1)
Quarter: 2018Q2

REPORT INFORMATION
  Report Type: Spontaneous
  Country: US (occurrence: US)
  Receive Date: 20180507
  Receipt Date: 20180507
  Transmission Date: 20180711
  Serious: Yes (Other)
  Sender: FDA-Public Use
  Company Number: US-PFIZER INC-2018181181

PATIENT
  Age: 73 Year
  Sex: Male
  Weight: 90.72 kg

DRUGS (2)
  1. LIPITOR [Concomitant]
     Active Substance: ATORVASTATIN CALCIUM
     Dosage: 80 MG, 1X/DAY
     Route: 048
  2. SERTRALINE HCL [Suspect]
     Active Substance: SERTRALINE HYDROCHLORIDE
     Dosage: 50 MG, ^JUST ONE^
     Route: 048
     Dates: start: 2015

REACTIONS (4)
  - Palpitations [Unknown]
  - Sleep apnoea syndrome [Unknown]
  - Arrhythmia [Unknown]
  - Atrial fibrillation [Unknown]
